FAERS Safety Report 21965510 (Version 1)
Quarter: 2023Q1

REPORT INFORMATION
  Report Type: Spontaneous
  Country: US (occurrence: US)
  Receive Date: 20230208
  Receipt Date: 20230208
  Transmission Date: 20230417
  Serious: No
  Sender: FDA-Public Use
  Company Number: US-NEBO-PC009816

PATIENT
  Sex: Female
  Weight: 54 kg

DRUGS (1)
  1. MONOFERRIC [Suspect]
     Active Substance: FERRIC DERISOMALTOSE
     Indication: Product used for unknown indication
     Dosage: MIXED IN 100ML NS
     Route: 050
     Dates: start: 20230123, end: 20230123

REACTIONS (5)
  - Flushing [Unknown]
  - Malaise [Unknown]
  - Chest discomfort [Unknown]
  - Paraesthesia [Recovered/Resolved]
  - Erythema [Unknown]

NARRATIVE: CASE EVENT DATE: 20230123
